FAERS Safety Report 4407871-3 (Version None)
Quarter: 2004Q3

REPORT INFORMATION
  Report Type: 
  Country: None (occurrence: None)
  Receive Date: 20040726
  Receipt Date: 20040719
  Transmission Date: 20050211
  Serious: Yes (Other)
  Sender: FDA-Public Use
  Company Number: PHEH2004US07790

PATIENT
  Age: 56 Year
  Sex: Female

DRUGS (7)
  1. ZELNORM [Suspect]
  2. SENOKOT [Suspect]
  3. LEXAPRO [Suspect]
     Indication: ANXIETY
     Dosage: 20 MG, QD
     Route: 048
     Dates: start: 20030701
  4. SEROQUEL [Concomitant]
  5. RISPERDAL [Concomitant]
  6. KLONOPIN [Concomitant]
  7. DULCOLAX [Concomitant]

REACTIONS (1)
  - OROPHARYNGEAL SWELLING [None]
